FAERS Safety Report 6469180-0 (Version None)
Quarter: 2009Q4

REPORT INFORMATION
  Report Type: 
  Country: None (occurrence: None)
  Receive Date: 20091203
  Receipt Date: 20071018
  Transmission Date: 20100525
  Serious: Yes (Other)
  Sender: FDA-Public Use
  Company Number: US-LLY01-US200706005286

PATIENT
  Sex: Male

DRUGS (2)
  1. ZYPREXA [Suspect]
  2. LAMICTAL [Concomitant]

REACTIONS (1)
  - PNEUMONIA [None]
